FAERS Safety Report 20079255 (Version 1)
Quarter: 2021Q4

REPORT INFORMATION
  Report Type: Spontaneous
  Country: GB (occurrence: GB)
  Receive Date: 20211117
  Receipt Date: 20211117
  Transmission Date: 20220304
  Serious: Yes (Other)
  Sender: FDA-Public Use
  Company Number: None

PATIENT
  Age: 31 Year
  Sex: Female
  Weight: 62 kg

DRUGS (3)
  1. ARIPIPRAZOLE [Suspect]
     Active Substance: ARIPIPRAZOLE
     Indication: Product used for unknown indication
     Route: 048
     Dates: start: 20211026
  2. OLANZAPINE [Suspect]
     Active Substance: OLANZAPINE
     Indication: Product used for unknown indication
     Route: 048
     Dates: start: 20211012, end: 20211024
  3. DIAZEPAM [Concomitant]
     Active Substance: DIAZEPAM

REACTIONS (8)
  - Muscular weakness [Not Recovered/Not Resolved]
  - Dysarthria [Recovering/Resolving]
  - Asthenia [Unknown]
  - Fatigue [Unknown]
  - Limb discomfort [Unknown]
  - Chest discomfort [Unknown]
  - Disorientation [Unknown]
  - Dyspnoea [Unknown]

NARRATIVE: CASE EVENT DATE: 20211012
